FAERS Safety Report 8176931-6 (Version None)
Quarter: 2012Q1

REPORT INFORMATION
  Report Type: 
  Country: None (occurrence: None)
  Receive Date: 20120301
  Receipt Date: 20120222
  Transmission Date: 20120608
  Serious: Yes (Hospitalization, Other)
  Sender: FDA-Public Use
  Company Number: US-JNJFOC-20120200256

PATIENT
  Sex: Female
  Weight: 126.1 kg

DRUGS (2)
  1. XARELTO [Suspect]
     Route: 048
  2. XARELTO [Suspect]
     Indication: THROMBOSIS PROPHYLAXIS
     Route: 048
     Dates: start: 20120110, end: 20120111

REACTIONS (2)
  - VENOUS THROMBOSIS [None]
  - DEEP VEIN THROMBOSIS [None]
